FAERS Safety Report 6036299-8 (Version None)
Quarter: 2009Q1

REPORT INFORMATION
  Report Type: 
  Country: None (occurrence: None)
  Receive Date: 20090109
  Receipt Date: 20081118
  Transmission Date: 20090719
  Serious: Yes (Hospitalization, Other)
  Sender: FDA-Public Use
  Company Number: US-2008-00022

PATIENT
  Age: 65 Year
  Sex: Male

DRUGS (1)
  1. LISINOPRIL [Suspect]

REACTIONS (3)
  - BLOOD CREATININE INCREASED [None]
  - BLOOD POTASSIUM INCREASED [None]
  - SMALL BOWEL ANGIOEDEMA [None]
